FAERS Safety Report 14387378 (Version 1)
Quarter: 2018Q1

REPORT INFORMATION
  Report Type: Spontaneous
  Country: CA (occurrence: CA)
  Receive Date: 20180115
  Receipt Date: 20180115
  Transmission Date: 20180509
  Serious: Yes (Life-Threatening, Hospitalization, Other)
  Sender: FDA-Public Use
  Company Number: CA-MYLANLABS-2018M1002057

PATIENT
  Age: 36 Year
  Sex: Female

DRUGS (2)
  1. EPINEPHRINE. [Concomitant]
     Active Substance: EPINEPHRINE
     Indication: PRODUCT USED FOR UNKNOWN INDICATION
     Dosage: 5 MICROG/ML
     Route: 058
  2. LIDOCAINE. [Suspect]
     Active Substance: LIDOCAINE
     Indication: LOCAL ANAESTHESIA
     Dosage: 20 ML
     Route: 058

REACTIONS (2)
  - Respiratory failure [Recovered/Resolved]
  - Cranial nerve palsies multiple [Recovered/Resolved]
